FAERS Safety Report 5714825-3 (Version None)
Quarter: 2008Q2

REPORT INFORMATION
  Report Type: 
  Country: None (occurrence: None)
  Receive Date: 20080423
  Receipt Date: 20080417
  Transmission Date: 20081010
  Serious: Yes (Death, Hospitalization, Other)
  Sender: FDA-Public Use
  Company Number: US-BRISTOL-MYERS SQUIBB COMPANY-14079131

PATIENT
  Age: 71 Year
  Sex: Female
  Weight: 118 kg

DRUGS (6)
  1. CETUXIMAB [Suspect]
     Indication: ANAL CANCER
     Dosage: STARTED ON 08-NOV-2007.
     Dates: start: 20080205, end: 20080227
  2. CISPLATIN [Suspect]
     Indication: ANAL CANCER
     Dates: start: 20071108
  3. COUMADIN [Suspect]
  4. MORPHINE SULFATE [Suspect]
  5. FLUOROURACIL [Suspect]
     Indication: ANAL CANCER
     Dosage: STARTED ON 08-NOV-2007.
     Dates: start: 20080205, end: 20080209
  6. RADIATION THERAPY [Suspect]
     Indication: ANAL CANCER
     Dosage: STRATED ON 08NOV07. 1 DOSAGEFORM=4500 CGY. NUMBER OF FRACTIONS: 25. NUMBER OF ELASPSED DAYS :36
     Dates: start: 20080212, end: 20080212

REACTIONS (31)
  - ACIDOSIS [None]
  - ALANINE AMINOTRANSFERASE INCREASED [None]
  - ANOREXIA [None]
  - ASPARTATE AMINOTRANSFERASE INCREASED [None]
  - ASTHENIA [None]
  - ATELECTASIS [None]
  - CARDIAC ENZYMES INCREASED [None]
  - DEATH [None]
  - DEHYDRATION [None]
  - DERMATITIS [None]
  - DIALYSIS [None]
  - DIARRHOEA [None]
  - DIVERTICULUM INTESTINAL [None]
  - FATIGUE [None]
  - GASTROENTERITIS RADIATION [None]
  - HYPOTENSION [None]
  - ILEUS [None]
  - INFECTION [None]
  - INTERNATIONAL NORMALISED RATIO INCREASED [None]
  - LOWER GASTROINTESTINAL HAEMORRHAGE [None]
  - NAUSEA [None]
  - PERFORMANCE STATUS DECREASED [None]
  - PLATELET COUNT DECREASED [None]
  - PLEURAL EFFUSION [None]
  - PNEUMONIA [None]
  - PROCTITIS [None]
  - RECTAL HAEMORRHAGE [None]
  - RENAL FAILURE [None]
  - RESPIRATORY FAILURE [None]
  - SEPSIS [None]
  - VOMITING [None]
